FAERS Safety Report 9361041 (Version 1)
Quarter: 2013Q2

REPORT INFORMATION
  Report Type: Spontaneous
  Country: US (occurrence: None)
  Receive Date: 20130618
  Receipt Date: 20130618
  Transmission Date: 20140414
  Serious: Yes (Hospitalization, Other)
  Sender: FDA-Public Use
  Company Number: 2013-129

PATIENT
  Age: 64 Year
  Sex: Female

DRUGS (4)
  1. PRIALT (ZICONOTIDE) INTRATHECAL INFUSION [Suspect]
     Indication: MUSCLE SPASTICITY
     Dosage: 0.03 MCG, ONCE/HOUR, INTRATHECAL
     Route: 037
     Dates: start: 20091029
  2. PRIALT (ZICONOTIDE) INTRATHECAL INFUSION [Suspect]
     Indication: MULTIPLE SCLEROSIS
     Dosage: 0.03 MCG, ONCE/HOUR, INTRATHECAL
     Route: 037
     Dates: start: 20091029
  3. DILAUDID (HYDROMORPHONE HYDROCHLORIDE) INJECTION [Suspect]
     Indication: MUSCLE SPASTICITY
     Dosage: UNK MG, ONCE/HOUR, INTRATHECAL
     Route: 037
     Dates: start: 20130422, end: 20130422
  4. DILAUDID (HYDROMORPHONE HYDROCHLORIDE) INJECTION [Suspect]
     Indication: MULTIPLE SCLEROSIS
     Dosage: UNK MG, ONCE/HOUR, INTRATHECAL
     Route: 037
     Dates: start: 20130422, end: 20130422

REACTIONS (4)
  - Drug hypersensitivity [None]
  - Suicidal ideation [None]
  - Pain [None]
  - Somnolence [None]
